FAERS Safety Report 7544843-4 (Version None)
Quarter: 2011Q2

REPORT INFORMATION
  Report Type: 
  Country: None (occurrence: None)
  Receive Date: 20110614
  Receipt Date: 20090930
  Transmission Date: 20111010
  Serious: Yes (Other)
  Sender: FDA-Public Use
  Company Number: US-BAYER-200934433NA

PATIENT
  Age: 68 Year
  Sex: Male
  Weight: 103 kg

DRUGS (25)
  1. HEPARIN [Concomitant]
     Dosage: 35000 U, UNK
     Route: 042
     Dates: start: 20050930, end: 20050930
  2. TRASYLOL [Suspect]
     Dosage: 200 ML LOADING DOSE
     Route: 040
     Dates: start: 20050930, end: 20050930
  3. LASIX [Concomitant]
     Dosage: 40 MG, QD
     Route: 048
  4. AMIODARONE HCL [Concomitant]
     Dosage: 200 MG, UNK
     Route: 048
  5. AMIODARONE HCL [Concomitant]
     Dosage: 450 MG
     Route: 042
  6. PROTAMINE SULFATE [Concomitant]
     Dosage: 300 MG, UNK
     Route: 042
     Dates: start: 20050930, end: 20050930
  7. EPINEPHRINE [Concomitant]
     Dosage: UNK
     Route: 042
     Dates: start: 20050930, end: 20050930
  8. DOBUTREX [Concomitant]
     Dosage: 5 MCQ/KG/MIN
     Route: 042
     Dates: start: 20050930
  9. TRASYLOL [Suspect]
     Indication: CORONARY REVASCULARISATION
     Dosage: 1 ML, ONCE, INITIAL TEST DOSE
     Route: 042
     Dates: start: 20050930, end: 20050930
  10. MUCOMYST [Concomitant]
     Dosage: 600 MG, BID
     Route: 048
  11. VASOPRESSIN [Concomitant]
     Dosage: 100 U
     Route: 042
     Dates: start: 20050930
  12. METOCLOPRAMIDE [Concomitant]
     Dosage: 20 MG, UNK
     Route: 042
     Dates: start: 20050930, end: 20050930
  13. DIOVAN [Concomitant]
     Dosage: 80 MG, QD
     Route: 048
  14. DIGOXIN [Concomitant]
     Dosage: 125 MCQ
     Route: 048
  15. CEFAZOLIN [Concomitant]
     Dosage: 1 G, UNK
     Route: 042
     Dates: start: 20050930, end: 20050930
  16. NEOSYNEPHRINE [Concomitant]
     Dosage: UNK
     Route: 042
     Dates: start: 20050930, end: 20050930
  17. VERSED [Concomitant]
     Dosage: UNK
     Route: 042
     Dates: start: 20050930, end: 20050930
  18. PROPOFOL [Concomitant]
     Dosage: 100 ML, UNK
     Route: 042
     Dates: start: 20050930
  19. PHENYLEPHRINE HCL [Concomitant]
     Dosage: 400 MCQ
     Route: 042
     Dates: start: 20050930
  20. TRASYLOL [Suspect]
     Dosage: 25ML/HOUR INFUSION
     Dates: start: 20050930, end: 20050930
  21. COREG [Concomitant]
     Dosage: 6.25 MG, BID
     Route: 048
  22. METHYLPREDNISOLONE ACETATE [Concomitant]
     Dosage: UNK
     Route: 042
     Dates: start: 20050930
  23. MILRINONE [Concomitant]
     Dosage: 20 MG, UNK
     Route: 042
     Dates: start: 20050930
  24. PLASMA [Concomitant]
     Dosage: 2 U, ONCE
     Route: 042
     Dates: start: 20050930
  25. EPHEDRINE [Concomitant]
     Dosage: 50 MG, UNK
     Route: 042
     Dates: start: 20050930, end: 20050930

REACTIONS (11)
  - STRESS [None]
  - ANXIETY [None]
  - RENAL FAILURE [None]
  - RENAL IMPAIRMENT [None]
  - PAIN [None]
  - RENAL INJURY [None]
  - EMOTIONAL DISTRESS [None]
  - INJURY [None]
  - FEAR [None]
  - DEPRESSION [None]
  - UNEVALUABLE EVENT [None]
